FAERS Safety Report 6660354-2 (Version None)
Quarter: 2010Q1

REPORT INFORMATION
  Report Type: 
  Country: None (occurrence: None)
  Receive Date: 20100331
  Receipt Date: 20100322
  Transmission Date: 20100710
  Serious: Yes (Hospitalization)
  Sender: FDA-Public Use
  Company Number: US-JNJFOC-20100306764

PATIENT
  Sex: Female
  Weight: 108.86 kg

DRUGS (4)
  1. FENTANYL-100 [Suspect]
     Indication: DRUG USE FOR UNKNOWN INDICATION
     Dosage: 100UG/HR 25 UG/HR
     Route: 062
  2. FENTANYL-100 [Suspect]
     Dosage: 100UG/HR 25 UG/HR
     Route: 062
  3. FENTANYL-100 [Suspect]
     Indication: NEURALGIA
     Dosage: 100UG/HR+25 UG/HR
     Route: 062
  4. FENTANYL-100 [Suspect]
     Indication: DRUG USE FOR UNKNOWN INDICATION
     Dosage: 100UG/HR+25UG/HR
     Route: 062

REACTIONS (4)
  - ARTHRALGIA [None]
  - DRUG INEFFECTIVE [None]
  - MUSCLE SPASMS [None]
  - PRODUCT ADHESION ISSUE [None]
